FAERS Safety Report 7974544-X (Version None)
Quarter: 2011Q4

REPORT INFORMATION
  Report Type: 
  Country: None (occurrence: None)
  Receive Date: 20111213
  Receipt Date: 20111202
  Transmission Date: 20120403
  Serious: Yes (Other)
  Sender: FDA-Public Use
  Company Number: US-JNJFOC-20111202073

PATIENT
  Sex: Female
  Weight: 116.58 kg

DRUGS (4)
  1. METHOTREXATE [Concomitant]
     Indication: PSORIATIC ARTHROPATHY
  2. REMICADE [Suspect]
     Indication: PSORIASIS
     Route: 042
  3. METHOTREXATE [Concomitant]
     Indication: PSORIASIS
  4. REMICADE [Suspect]
     Indication: PSORIATIC ARTHROPATHY
     Route: 042

REACTIONS (1)
  - FEMUR FRACTURE [None]
